FAERS Safety Report 8493060-2 (Version None)
Quarter: 2012Q2

REPORT INFORMATION
  Report Type: 
  Country: None (occurrence: None)
  Receive Date: 20120629
  Receipt Date: 20120629
  Transmission Date: 20120825
  Serious: Yes (Death, Hospitalization)
  Sender: FDA-Public Use
  Company Number: None

PATIENT
  Sex: Female
  Weight: 131.5 kg

DRUGS (14)
  1. CELECOXIB [Concomitant]
  2. LASIX [Concomitant]
  3. VERAPAMIL EXTENDED-RELEASE [Concomitant]
  4. CHOLECALCIFEROL [Concomitant]
  5. POTASSIUM CHLORIDE [Concomitant]
  6. VITAMIN [Concomitant]
  7. TAXOL [Suspect]
     Dosage: 350 MG
     Dates: end: 20110204
  8. FENTANYL [Concomitant]
  9. CARBOPLATIN [Suspect]
     Dosage: 724 MG
     Dates: end: 20110204
  10. SYNTHROID [Concomitant]
  11. TOPROL-XL [Concomitant]
  12. ACTOS [Concomitant]
  13. MICARDIS HCT [Concomitant]
  14. HYDROCODONE-ACETOMINOPHEN [Concomitant]

REACTIONS (19)
  - ASTHENIA [None]
  - FATIGUE [None]
  - ATELECTASIS [None]
  - MUSCULAR WEAKNESS [None]
  - HYPOTENSION [None]
  - SEPTIC SHOCK [None]
  - RENAL FAILURE [None]
  - JOINT RANGE OF MOTION DECREASED [None]
  - ARTHRALGIA [None]
  - STAPHYLOCOCCAL INFECTION [None]
  - BACK PAIN [None]
  - MUSCULOSKELETAL PAIN [None]
  - PANCYTOPENIA [None]
  - DEHYDRATION [None]
  - ACUTE MYOCARDIAL INFARCTION [None]
  - CARDIAC ARREST [None]
  - CONDITION AGGRAVATED [None]
  - WHEEZING [None]
  - RESPIRATORY FAILURE [None]
